FAERS Safety Report 7235381-7 (Version None)
Quarter: 2011Q1

REPORT INFORMATION
  Report Type: 
  Country: None (occurrence: None)
  Receive Date: 20110111
  Receipt Date: 20110103
  Transmission Date: 20110831
  Serious: Yes (Death, Hospitalization, Other)
  Sender: FDA-Public Use
  Company Number: 2010US004312

PATIENT
  Age: 33 Year
  Sex: Female

DRUGS (6)
  1. LABETALOL HCL [Concomitant]
  2. CIDOFOVIR (CIDOFOVIR) [Concomitant]
  3. BACTRIM [Concomitant]
  4. PROGRAF [Suspect]
     Indication: RENAL TRANSPLANT
     Dosage: 3 MG, BID, ORAL
     Route: 048
     Dates: start: 20091030, end: 20100514
  5. PROGRAF [Suspect]
     Indication: RENAL TRANSPLANT
     Dosage: 3 MG, BID, ORAL
     Route: 048
     Dates: start: 20060731, end: 20080407
  6. PROCRIT [Concomitant]

REACTIONS (22)
  - TRANSIENT ISCHAEMIC ATTACK [None]
  - CLOSTRIDIUM TEST POSITIVE [None]
  - SURGICAL PROCEDURE REPEATED [None]
  - CARDIAC ARREST [None]
  - PNEUMONIA CYTOMEGALOVIRAL [None]
  - PATHOGEN RESISTANCE [None]
  - SUPERINFECTION FUNGAL [None]
  - SINUS BRADYCARDIA [None]
  - RENAL TUBULAR NECROSIS [None]
  - DIARRHOEA [None]
  - VENTRICULAR TACHYCARDIA [None]
  - DECREASED APPETITE [None]
  - RENAL FAILURE ACUTE [None]
  - CONVULSION [None]
  - KIDNEY TRANSPLANT REJECTION [None]
  - SEPSIS [None]
  - FATIGUE [None]
  - CEREBROVASCULAR ACCIDENT [None]
  - RENAL TRANSPLANT [None]
  - VENTRICULAR FIBRILLATION [None]
  - ACUTE RESPIRATORY DISTRESS SYNDROME [None]
  - HYPOTENSION [None]
